FAERS Safety Report 8528931-1 (Version None)
Quarter: 2012Q3

REPORT INFORMATION
  Report Type: 
  Country: None (occurrence: None)
  Receive Date: 20120723
  Receipt Date: 20120718
  Transmission Date: 20120928
  Serious: No
  Sender: FDA-Public Use
  Company Number: US-PFIZER INC-2012174253

PATIENT
  Sex: Female
  Weight: 63.492 kg

DRUGS (5)
  1. CHANTIX [Suspect]
     Indication: SMOKING CESSATION THERAPY
     Dosage: UNK
     Route: 048
  2. CHANTIX [Suspect]
     Dosage: UNK
     Route: 048
     Dates: start: 20120301
  3. DIAZEPAM [Concomitant]
     Dosage: 5 MG, 2X/DAY
  4. CHANTIX [Suspect]
     Dosage: 1 MG, DAILY
     Route: 048
     Dates: start: 20120701
  5. AMITRIPTYLINE [Concomitant]
     Dosage: 2 MG, 2X/DAY

REACTIONS (2)
  - NOCTURIA [None]
  - RENAL DISORDER [None]
